FAERS Safety Report 11205661 (Version 2)
Quarter: 2015Q3

REPORT INFORMATION
  Report Type: Spontaneous
  Country: US (occurrence: US)
  Receive Date: 20150622
  Receipt Date: 20150819
  Transmission Date: 20151125
  Serious: Yes (Other)
  Sender: FDA-Public Use
  Company Number: US-BRACCO-012268

PATIENT

DRUGS (3)
  1. CARDIOGEN-82 [Suspect]
     Active Substance: RUBIDIUM CHLORIDE RB-82
     Indication: SCAN MYOCARDIAL PERFUSION
     Dosage: 40.1 MCI REST DOSE
     Route: 042
     Dates: start: 20150610, end: 20150610
  2. CARDIOGEN-82 [Suspect]
     Active Substance: RUBIDIUM CHLORIDE RB-82
     Indication: SCAN MYOCARDIAL PERFUSION
     Dosage: 40.1 GIVEN AS STRESS DOSE
     Route: 042
     Dates: start: 20150610, end: 20150610
  3. LEXISCAN [Concomitant]
     Active Substance: REGADENOSON
     Indication: SCAN MYOCARDIAL PERFUSION
     Route: 042
     Dates: start: 20150610, end: 20150610

REACTIONS (2)
  - Wrong technique in product usage process [Unknown]
  - No adverse event [Unknown]

NARRATIVE: CASE EVENT DATE: 20150610
